FAERS Safety Report 24167006 (Version 1)
Quarter: 2024Q3

REPORT INFORMATION
  Report Type: Spontaneous
  Country: US (occurrence: US)
  Receive Date: 20240802
  Receipt Date: 20240802
  Transmission Date: 20241017
  Serious: Yes (Other)
  Sender: MYLAN
  Company Number: US-MYLANLABS-2024M1071107

PATIENT
  Age: 70 Year
  Sex: Female

DRUGS (6)
  1. POSACONAZOLE [Interacting]
     Active Substance: POSACONAZOLE
     Indication: Hepatitis C
     Dosage: UNK
     Route: 065
  2. MAVYRET [Interacting]
     Active Substance: GLECAPREVIR\PIBRENTASVIR
     Indication: Hepatitis C
     Dosage: UNK
     Route: 065
  3. MAVYRET [Interacting]
     Active Substance: GLECAPREVIR\PIBRENTASVIR
     Dosage: UNK, DRUG WITHDRAWN AND AGAIN RESTARTED. LATER, DISCONTINUED.
     Route: 065
  4. AMIODARONE [Concomitant]
     Active Substance: AMIODARONE
     Indication: Atrial fibrillation
     Dosage: UNK
     Route: 065
  5. EPCLUSA [Concomitant]
     Active Substance: SOFOSBUVIR\VELPATASVIR
     Indication: Hepatitis C
     Dosage: UNK
     Route: 065
  6. EPCLUSA [Concomitant]
     Active Substance: SOFOSBUVIR\VELPATASVIR
     Dosage: UNK,  DRUG WITHDRAWN AND AGAIN RESTARTED
     Route: 065

REACTIONS (2)
  - Drug-induced liver injury [Recovered/Resolved]
  - Drug interaction [Recovered/Resolved]
